FAERS Safety Report 7328502-9 (Version None)
Quarter: 2011Q1

REPORT INFORMATION
  Report Type: 
  Country: None (occurrence: None)
  Receive Date: 20110225
  Receipt Date: 20110225
  Transmission Date: 20110831
  Serious: Yes (Other)
  Sender: FDA-Public Use
  Company Number: None

PATIENT
  Age: 55 Year
  Sex: Female

DRUGS (2)
  1. DIVALPROEX SODIUM [Suspect]
     Indication: PHOTOSENSITIVITY REACTION
     Dosage: 250MG AM 375 MG PM BID PO
     Route: 048
     Dates: start: 20101203, end: 20110203
  2. DIVALPROEX SODIUM [Suspect]
     Indication: EPILEPSY
     Dosage: 250MG AM 375 MG PM BID PO
     Route: 048
     Dates: start: 20101203, end: 20110203

REACTIONS (6)
  - PRODUCT SUBSTITUTION ISSUE [None]
  - SOMNOLENCE [None]
  - ALTERED STATE OF CONSCIOUSNESS [None]
  - DIZZINESS [None]
  - COGNITIVE DISORDER [None]
  - BALANCE DISORDER [None]
